FAERS Safety Report 9416518 (Version 3)
Quarter: 2013Q4

REPORT INFORMATION
  Report Type: Spontaneous
  Country: JP (occurrence: JP)
  Receive Date: 20130724
  Receipt Date: 20131114
  Transmission Date: 20140711
  Serious: Yes (Hospitalization)
  Sender: FDA-Public Use
  Company Number: JP-ROCHE-1252494

PATIENT
  Age: 68 Year
  Sex: Female

DRUGS (8)
  1. AVASTIN [Suspect]
     Indication: COLON CANCER METASTATIC
     Route: 041
     Dates: start: 201206
  2. 5-FU [Suspect]
     Indication: COLON CANCER METASTATIC
     Dosage: DOSE REDUCED
     Route: 041
  3. 5-FU [Suspect]
     Indication: COLON CANCER METASTATIC
     Route: 041
  4. IRINOTECAN HYDROCHLORIDE [Suspect]
     Indication: COLON CANCER METASTATIC
     Route: 041
     Dates: start: 201206
  5. IRINOTECAN HYDROCHLORIDE [Suspect]
     Indication: COLON CANCER METASTATIC
     Route: 041
  6. TS-1 [Concomitant]
     Indication: COLON CANCER METASTATIC
     Route: 048
     Dates: start: 201206
  7. TS-1 [Concomitant]
     Indication: COLON CANCER METASTATIC
     Route: 048
  8. CALCIUM LEVOFOLINATE [Concomitant]
     Indication: COLON CANCER METASTATIC
     Route: 041

REACTIONS (3)
  - Diarrhoea [Unknown]
  - Neutropenia [Unknown]
  - Hyperammonaemia [Unknown]
